FAERS Safety Report 21382605 (Version 1)
Quarter: 2022Q3

REPORT INFORMATION
  Report Type: Other
  Country: US (occurrence: None)
  Receive Date: 20220927
  Receipt Date: 20220927
  Transmission Date: 20221026
  Serious: Yes (Other)
  Sender: FDA-Public Use
  Company Number: US-ROCHE-3181957

PATIENT
  Age: 42 Year
  Sex: Male
  Weight: 77.180 kg

DRUGS (2)
  1. OCREVUS [Suspect]
     Active Substance: OCRELIZUMAB
     Indication: Relapsing-remitting multiple sclerosis
     Dosage: ONGOING:YES
     Route: 042
     Dates: start: 20210726
  2. OCREVUS [Suspect]
     Active Substance: OCRELIZUMAB
     Indication: Multiple sclerosis
     Route: 042

REACTIONS (6)
  - Weight decreased [Recovered/Resolved]
  - Decreased appetite [Recovering/Resolving]
  - COVID-19 [Recovered/Resolved]
  - Herpes zoster [Not Recovered/Not Resolved]
  - Nephrolithiasis [Recovered/Resolved]
  - Feeling abnormal [Recovering/Resolving]

NARRATIVE: CASE EVENT DATE: 20220715
